FAERS Safety Report 16700930 (Version 2)
Quarter: 2022Q1

REPORT INFORMATION
  Report Type: Spontaneous
  Country: IT (occurrence: IT)
  Receive Date: 20190814
  Receipt Date: 20220304
  Transmission Date: 20220424
  Serious: Yes (Hospitalization)
  Sender: FDA-Public Use
  Company Number: IT-TEVA-2019-IT-1090649

PATIENT
  Age: 86 Year
  Sex: Male

DRUGS (2)
  1. DICLOFENAC [Interacting]
     Active Substance: DICLOFENAC
     Route: 065
  2. WARFARIN [Interacting]
     Active Substance: WARFARIN
     Indication: Prophylaxis
     Route: 048

REACTIONS (4)
  - Melaena [Recovered/Resolved]
  - Gastritis erosive [Recovered/Resolved]
  - Labelled drug-drug interaction medication error [Recovered/Resolved]
  - Incorrect dose administered [Recovered/Resolved]
